FAERS Safety Report 7411691-5 (Version None)
Quarter: 2011Q2

REPORT INFORMATION
  Report Type: 
  Country: None (occurrence: None)
  Receive Date: 20110413
  Receipt Date: 20101214
  Transmission Date: 20111010
  Serious: Yes (Other)
  Sender: FDA-Public Use
  Company Number: US-BRISTOL-MYERS SQUIBB COMPANY-15377039

PATIENT
  Age: 64 Year
  Sex: Male

DRUGS (1)
  1. ERBITUX [Suspect]
     Indication: NON-SMALL CELL LUNG CANCER
     Route: 042
     Dates: start: 20100810, end: 20100810

REACTIONS (7)
  - MICTURITION URGENCY [None]
  - DEFAECATION URGENCY [None]
  - RASH [None]
  - HYPOAESTHESIA [None]
  - DYSPNOEA [None]
  - PRODUCTIVE COUGH [None]
  - PRURITUS [None]
